FAERS Safety Report 6739779-2 (Version None)
Quarter: 2010Q2

REPORT INFORMATION
  Report Type: 
  Country: None (occurrence: None)
  Receive Date: 20100525
  Receipt Date: 20100517
  Transmission Date: 20101027
  Serious: Yes (Hospitalization)
  Sender: FDA-Public Use
  Company Number: IT-AMGEN-QUU412651

PATIENT
  Sex: Female

DRUGS (1)
  1. NPLATE [Suspect]
     Indication: IDIOPATHIC THROMBOCYTOPENIC PURPURA
     Route: 058

REACTIONS (4)
  - HAEMORRHAGE SUBCUTANEOUS [None]
  - METRORRHAGIA [None]
  - PETECHIAE [None]
  - THERAPEUTIC RESPONSE DECREASED [None]
